FAERS Safety Report 10632370 (Version 1)
Quarter: 2014Q4

REPORT INFORMATION
  Report Type: Spontaneous
  Country: US (occurrence: None)
  Receive Date: 20141203
  Receipt Date: 20141203
  Transmission Date: 20150529
  Serious: No
  Sender: FDA-Public Use
  Company Number: None

PATIENT

DRUGS (2)
  1. FELODIPINE. [Suspect]
     Active Substance: FELODIPINE
     Route: 048
  2. PINDOLOL. [Suspect]
     Active Substance: PINDOLOL

REACTIONS (2)
  - Wrong drug administered [None]
  - Drug dispensing error [None]
